FAERS Safety Report 5583895-8 (Version None)
Quarter: 2008Q1

REPORT INFORMATION
  Report Type: 
  Country: None (occurrence: None)
  Receive Date: 20080102
  Receipt Date: 20080102
  Transmission Date: 20080703
  Serious: Yes (Life-Threatening, Hospitalization)
  Sender: FDA-Public Use
  Company Number: None

PATIENT
  Age: 52 Year
  Sex: Female
  Weight: 83.9154 kg

DRUGS (3)
  1. AVELOX [Suspect]
     Indication: BRONCHITIS
     Dosage: AVELOX 400MG 1 X DAILY PO
     Route: 048
     Dates: start: 20071227, end: 20071227
  2. AVELOX [Suspect]
     Indication: MUCOSAL DISCOLOURATION
     Dosage: AVELOX 400MG 1 X DAILY PO
     Route: 048
     Dates: start: 20071227, end: 20071227
  3. MUCINEX [Suspect]
     Indication: BRONCHITIS
     Dosage: MUCINEX 600 MG 1 TAB EVERY 12 HRS PO
     Route: 048
     Dates: start: 20071227, end: 20071227

REACTIONS (3)
  - ANAPHYLACTIC SHOCK [None]
  - DRUG HYPERSENSITIVITY [None]
  - NO REACTION ON PREVIOUS EXPOSURE TO DRUG [None]
